FAERS Safety Report 7394976-0 (Version None)
Quarter: 2011Q2

REPORT INFORMATION
  Report Type: 
  Country: None (occurrence: None)
  Receive Date: 20110405
  Receipt Date: 20110404
  Transmission Date: 20111010
  Serious: Yes (Other)
  Sender: FDA-Public Use
  Company Number: IE-CEPHALON-2009009986

PATIENT
  Sex: Female

DRUGS (2)
  1. FENTANYL CITRATE [Suspect]
     Route: 002
  2. FENTANYL CITRATE [Suspect]
     Route: 048

REACTIONS (3)
  - DRUG DEPENDENCE [None]
  - TOXICITY TO VARIOUS AGENTS [None]
  - AGITATION [None]
